FAERS Safety Report 11772754 (Version 1)
Quarter: 2015Q4

REPORT INFORMATION
  Report Type: Spontaneous
  Country: GR (occurrence: GR)
  Receive Date: 20151124
  Receipt Date: 20151124
  Transmission Date: 20160304
  Serious: Yes (Hospitalization)
  Sender: FDA-Public Use
  Company Number: GR-009507513-1511GRC010788

PATIENT
  Age: 75 Year
  Sex: Male

DRUGS (1)
  1. INEGY [Suspect]
     Active Substance: EZETIMIBE\SIMVASTATIN
     Indication: DYSLIPIDAEMIA
     Dosage: ONE TABLET OF 10/10MG EVERY DAY
     Route: 048
     Dates: start: 2012

REACTIONS (3)
  - Blood calcium decreased [Unknown]
  - Blood iron decreased [Unknown]
  - Asthenia [Unknown]

NARRATIVE: CASE EVENT DATE: 201510
